FAERS Safety Report 5036851-2 (Version None)
Quarter: 2006Q2

REPORT INFORMATION
  Report Type: 
  Country: None (occurrence: None)
  Receive Date: 20060609
  Receipt Date: 20060417
  Transmission Date: 20061013
  Serious: Yes (Other)
  Sender: FDA-Public Use
  Company Number: 445569

PATIENT
  Sex: Female

DRUGS (1)
  1. XENICAL [Suspect]
     Dosage: ORAL
     Route: 048
     Dates: start: 20060315, end: 20060415

REACTIONS (4)
  - CONFUSIONAL STATE [None]
  - DISTURBANCE IN ATTENTION [None]
  - DIZZINESS [None]
  - HYPOGLYCAEMIA [None]
